FAERS Safety Report 9924964 (Version 2)
Quarter: 2014Q2

REPORT INFORMATION
  Report Type: Spontaneous
  Country: US (occurrence: US)
  Receive Date: 20140226
  Receipt Date: 20140520
  Transmission Date: 20141212
  Serious: No
  Sender: FDA-Public Use
  Company Number: US-009507513-1402USA011834

PATIENT
  Sex: Female

DRUGS (2)
  1. OXYTROL FOR WOMEN [Suspect]
     Indication: POLLAKIURIA
     Dosage: UNK, ONCE
     Route: 062
     Dates: start: 20140204
  2. OXYTROL FOR WOMEN [Suspect]
     Indication: DISCOMFORT

REACTIONS (3)
  - Unevaluable event [Unknown]
  - Incorrect drug administration duration [Unknown]
  - Product adhesion issue [Unknown]
